FAERS Safety Report 24642941 (Version 1)
Quarter: 2024Q4

REPORT INFORMATION
  Report Type: Spontaneous
  Country: US (occurrence: US)
  Receive Date: 20241120
  Receipt Date: 20241120
  Transmission Date: 20250115
  Serious: Yes (Hospitalization)
  Sender: MERCK
  Company Number: US-009507513-2411USA006115

PATIENT
  Age: 54 Year

DRUGS (1)
  1. DIFICID [Suspect]
     Active Substance: FIDAXOMICIN
     Dosage: 200MG TWICE DAILY FOR 7 DAYS
     Route: 048
     Dates: start: 2024, end: 202404

REACTIONS (3)
  - Hospitalisation [Recovered/Resolved]
  - Incorrect product administration duration [Unknown]
  - Product dispensing error [Unknown]

NARRATIVE: CASE EVENT DATE: 20240401
